FAERS Safety Report 9466566 (Version 3)
Quarter: 2013Q4

REPORT INFORMATION
  Report Type: Report from Study
  Country: DE (occurrence: IL)
  Receive Date: 20130820
  Receipt Date: 20131105
  Transmission Date: 20140711
  Serious: Yes (Hospitalization)
  Sender: FDA-Public Use
  Company Number: DE-ACTELION-A-NJ2013-87321

PATIENT
  Age: 81 Year
  Sex: Female

DRUGS (17)
  1. VENTAVIS [Suspect]
     Indication: PULMONARY HYPERTENSION
     Dosage: 2.5 G, QID
     Route: 055
     Dates: start: 201308
  2. VENTAVIS [Suspect]
     Dosage: UNK UNK, QID
     Route: 055
     Dates: start: 20130804, end: 20130804
  3. COUMADIN [Suspect]
     Dosage: UNK
     Dates: end: 201308
  4. INSULIN [Concomitant]
     Dosage: UNK
  5. SIMOVIL [Concomitant]
  6. TRITACE [Concomitant]
  7. METFORMIN [Concomitant]
     Indication: ESSENTIAL HYPERTENSION
  8. FOSALAN [Concomitant]
  9. SINGULAIR [Concomitant]
  10. FLIXOTIDE [Concomitant]
  11. VENTOLIN [Concomitant]
  12. PREDNISONE [Concomitant]
  13. CARDILOC [Concomitant]
  14. VASODIP [Concomitant]
  15. OMEPRADEX [Concomitant]
  16. SEREVENT [Concomitant]
  17. AEROVENT [Concomitant]

REACTIONS (6)
  - Feeling abnormal [Recovered/Resolved]
  - Nausea [Recovered/Resolved]
  - Asthenia [Recovered/Resolved]
  - Dizziness [Recovered/Resolved]
  - Haemoptysis [Unknown]
  - International normalised ratio increased [Unknown]
